FAERS Safety Report 6631415-9 (Version None)
Quarter: 2010Q1

REPORT INFORMATION
  Report Type: 
  Country: None (occurrence: None)
  Receive Date: 20100312
  Receipt Date: 20100302
  Transmission Date: 20100710
  Serious: Yes (Other)
  Sender: FDA-Public Use
  Company Number: US-BAYER-201015475NA

PATIENT
  Age: 25 Year
  Sex: Female

DRUGS (2)
  1. MIRENA [Suspect]
     Indication: CONTRACEPTION
     Dosage: (INSERTED ON 2005 OR 2006)
     Route: 015
     Dates: end: 20081101
  2. MIRENA [Suspect]
     Route: 015
     Dates: start: 20091130

REACTIONS (6)
  - ABORTION SPONTANEOUS [None]
  - DEVICE EXPULSION [None]
  - FUNGAL INFECTION [None]
  - MEDICAL DEVICE DISCOMFORT [None]
  - MENORRHAGIA [None]
  - PREGNANCY WITH CONTRACEPTIVE DEVICE [None]
